FAERS Safety Report 4341860-2 (Version None)
Quarter: 2004Q2

REPORT INFORMATION
  Report Type: 
  Country: None (occurrence: None)
  Receive Date: 20040415
  Receipt Date: 20040405
  Transmission Date: 20050107
  Serious: Yes (Hospitalization)
  Sender: FDA-Public Use
  Company Number: EWC040338664

PATIENT
  Age: 57 Year
  Sex: Male
  Weight: 67 kg

DRUGS (1)
  1. GEMZAR [Suspect]
     Indication: NON-SMALL CELL LUNG CANCER
     Dosage: 1000  MG/M2 OTHER
     Dates: start: 20040109, end: 20040318

REACTIONS (2)
  - HEADACHE [None]
  - VERTIGO [None]
